FAERS Safety Report 13890464 (Version 2)
Quarter: 2018Q1

REPORT INFORMATION
  Report Type: Other
  Country: FR (occurrence: FR)
  Receive Date: 20170822
  Receipt Date: 20180208
  Transmission Date: 20180508
  Serious: Yes (Hospitalization)
  Sender: FDA-Public Use
  Company Number: FR-CELLTRION INC.-2017FR010827

PATIENT

DRUGS (4)
  1. PURINETHOL [Concomitant]
     Active Substance: MERCAPTOPURINE
     Indication: PAIN
     Route: 065
  2. INFLECTRA [Suspect]
     Active Substance: INFLIXIMAB-DYYB
     Indication: CROHN^S DISEASE
     Dosage: 10 MG/KG, EVERY 4 WEEKS
     Route: 042
     Dates: start: 201610, end: 201705
  3. INFLECTRA [Suspect]
     Active Substance: INFLIXIMAB-DYYB
     Dosage: 10 MG/KG, EVERY 6 WEEKS
     Route: 065
     Dates: start: 201705, end: 20170710
  4. DOLIPRANE [Concomitant]
     Active Substance: ACETAMINOPHEN
     Indication: PAIN
     Route: 065

REACTIONS (8)
  - Lupus-like syndrome [Not Recovered/Not Resolved]
  - Movement disorder [Not Recovered/Not Resolved]
  - Rash maculo-papular [Not Recovered/Not Resolved]
  - Joint stiffness [Not Recovered/Not Resolved]
  - Arthralgia [Not Recovered/Not Resolved]
  - Skin infection [Not Recovered/Not Resolved]
  - Acne [Not Recovered/Not Resolved]
  - Skin induration [Not Recovered/Not Resolved]

NARRATIVE: CASE EVENT DATE: 201611
